FAERS Safety Report 21687374 (Version 1)
Quarter: 2022Q4

REPORT INFORMATION
  Report Type: Spontaneous
  Country: IT (occurrence: IT)
  Receive Date: 20221206
  Receipt Date: 20221206
  Transmission Date: 20230112
  Serious: Yes (Other)
  Sender: FDA-Public Use
  Company Number: IT-OCTA-LIT03522IT

PATIENT
  Age: 9 Year
  Sex: Female

DRUGS (3)
  1. HUMAN IMMUNOGLOBULIN G [Suspect]
     Active Substance: HUMAN IMMUNOGLOBULIN G
     Indication: Congenital thrombocytopenia
     Dosage: 1 G/KG
     Route: 042
  2. CEFTRIAXONE [Concomitant]
     Active Substance: CEFTRIAXONE
     Indication: Respiratory syncytial virus infection
  3. AMIKACIN [Concomitant]
     Active Substance: AMIKACIN
     Indication: Respiratory syncytial virus infection

REACTIONS (1)
  - Pancytopenia [Recovered/Resolved]
